FAERS Safety Report 13065426 (Version 1)
Quarter: 2016Q4

REPORT INFORMATION
  Report Type: Spontaneous
  Country: SE (occurrence: SE)
  Receive Date: 20161227
  Receipt Date: 20161227
  Transmission Date: 20170207
  Serious: Yes (Other)
  Sender: FDA-Public Use
  Company Number: SE-PFIZER INC-2016591076

PATIENT
  Age: 48 Year
  Sex: Female

DRUGS (3)
  1. DESLORATADINE. [Concomitant]
     Active Substance: DESLORATADINE
  2. SALAZOPYRIN EN [Suspect]
     Active Substance: SULFASALAZINE
     Indication: PSORIATIC ARTHROPATHY
     Dosage: 500 MG, 1X/DAY
     Dates: start: 20161027, end: 20161208
  3. ORUDIS [Concomitant]
     Active Substance: KETOPROFEN
     Dosage: 200 MG, UNK

REACTIONS (6)
  - Generalised oedema [Recovered/Resolved]
  - Depressed mood [Recovered/Resolved]
  - Feeling abnormal [Recovered/Resolved]
  - Diplopia [Recovered/Resolved]
  - Migraine [Recovered/Resolved]
  - Condition aggravated [Recovered/Resolved]

NARRATIVE: CASE EVENT DATE: 20161028
